FAERS Safety Report 10549076 (Version 2)
Quarter: 2015Q2

REPORT INFORMATION
  Report Type: Report from Study
  Country: GR (occurrence: GR)
  Receive Date: 20141028
  Receipt Date: 20150514
  Transmission Date: 20150821
  Serious: Yes (Death, Hospitalization, Other)
  Sender: FDA-Public Use
  Company Number: GR-SHIRE-GR201407193

PATIENT
  Age: 24 Year
  Sex: Male

DRUGS (1)
  1. IDURSULFASE [Suspect]
     Active Substance: IDURSULFASE
     Indication: MUCOPOLYSACCHARIDOSIS II
     Dosage: 0.5 MG/KG, 1X/WEEK
     Route: 041
     Dates: start: 20050210

REACTIONS (3)
  - Respiratory failure [Fatal]
  - Respiratory distress [Unknown]
  - Respiratory tract infection [Fatal]

NARRATIVE: CASE EVENT DATE: 201404
